FAERS Safety Report 7047152-5 (Version None)
Quarter: 2010Q4

REPORT INFORMATION
  Report Type: 
  Country: None (occurrence: None)
  Receive Date: 20101015
  Receipt Date: 20101005
  Transmission Date: 20110411
  Serious: Yes (Other)
  Sender: FDA-Public Use
  Company Number: CA-JNJFOC-20101002484

PATIENT
  Age: 62 Year
  Sex: Male
  Weight: 96.4 kg

DRUGS (8)
  1. REMICADE [Suspect]
     Indication: RHEUMATOID ARTHRITIS
     Route: 042
  2. MTX [Concomitant]
     Route: 048
  3. CELEBREX [Concomitant]
     Route: 048
  4. ATENOLOL [Concomitant]
     Route: 048
  5. FOLIC ACID [Concomitant]
     Route: 048
  6. VITAMIN D [Concomitant]
  7. ASCORBIC ACID [Concomitant]
     Route: 048
  8. CALCIUM [Concomitant]

REACTIONS (4)
  - COUGH [None]
  - LOCALISED INFECTION [None]
  - NASAL CONGESTION [None]
  - SKIN LACERATION [None]
